FAERS Safety Report 17411288 (Version 1)
Quarter: 2020Q1

REPORT INFORMATION
  Report Type: Spontaneous
  Country: CH (occurrence: CH)
  Receive Date: 20200212
  Receipt Date: 20200212
  Transmission Date: 20200409
  Serious: Yes (Other)
  Sender: FDA-Public Use
  Company Number: CH-AMGEN-CHESP2020022194

PATIENT
  Age: 22 Year
  Sex: Female

DRUGS (10)
  1. ENDOXAN [CYCLOPHOSPHAMIDE] [Concomitant]
     Active Substance: CYCLOPHOSPHAMIDE
     Indication: OVARIAN CANCER
  2. PLATINOX [CISPLATIN] [Concomitant]
     Indication: SMALL CELL CARCINOMA
     Dosage: UNK
  3. ETOPOPHOS [Concomitant]
     Active Substance: ETOPOSIDE PHOSPHATE
     Indication: SMALL CELL CARCINOMA
     Dosage: UNK
  4. ZOLADEX [Concomitant]
     Active Substance: GOSERELIN ACETATE
     Indication: PROPHYLAXIS
     Dosage: UNK
  5. FILGRASTIM [Suspect]
     Active Substance: FILGRASTIM
     Indication: HAEMATOPOIETIC STEM CELL MOBILISATION
     Dosage: UNK
     Route: 065
  6. ETOPOPHOS [Concomitant]
     Active Substance: ETOPOSIDE PHOSPHATE
     Indication: OVARIAN CANCER
  7. PLATINOX [CISPLATIN] [Concomitant]
     Indication: OVARIAN CANCER
  8. ADRIBLASTINE [Concomitant]
     Active Substance: DOXORUBICIN
     Indication: OVARIAN CANCER
  9. ENDOXAN [CYCLOPHOSPHAMIDE] [Concomitant]
     Active Substance: CYCLOPHOSPHAMIDE
     Indication: SMALL CELL CARCINOMA
     Dosage: UNK
  10. ADRIBLASTINE [Concomitant]
     Active Substance: DOXORUBICIN
     Indication: SMALL CELL CARCINOMA
     Dosage: UNK

REACTIONS (1)
  - Ovarian cyst [Recovered/Resolved]
